FAERS Safety Report 21515212 (Version 1)
Quarter: 2022Q4

REPORT INFORMATION
  Report Type: Spontaneous
  Country: US (occurrence: US)
  Receive Date: 20221027
  Receipt Date: 20221027
  Transmission Date: 20230113
  Serious: Yes (Hospitalization)
  Sender: FDA-Public Use
  Company Number: US-PFIZER INC-PV202200089924

PATIENT
  Age: 74 Year
  Sex: Female

DRUGS (6)
  1. SPIRONOLACTONE [Suspect]
     Active Substance: SPIRONOLACTONE
     Dosage: UNK
  2. LENVIMA [Concomitant]
     Active Substance: LENVATINIB
     Indication: Hepatic cancer
     Dosage: 8 MG, DAILY (8 MG DAILY FOR 2 WEEKS)
     Route: 048
     Dates: start: 20220427, end: 20220510
  3. LENVIMA [Concomitant]
     Active Substance: LENVATINIB
     Dosage: 12 MG, DAILY
     Dates: start: 20220511, end: 202205
  4. LENVIMA [Concomitant]
     Active Substance: LENVATINIB
     Dosage: 8 MG, DAILY
     Dates: start: 202205, end: 20220528
  5. LENVIMA [Concomitant]
     Active Substance: LENVATINIB
     Dosage: 4 MG, DAILY
     Dates: start: 20220624, end: 202208
  6. LENVIMA [Concomitant]
     Active Substance: LENVATINIB
     Dosage: 4 MG DAILY FOR TWO DAYS ALTERNATING WITH 8 MG DAILY EVERY THREE DAYS
     Dates: start: 20220817

REACTIONS (1)
  - Blood potassium increased [Unknown]
